FAERS Safety Report 5489267-9 (Version None)
Quarter: 2008Q1

REPORT INFORMATION
  Report Type: 
  Country: None (occurrence: None)
  Receive Date: 20071018
  Receipt Date: 20071011
  Transmission Date: 20080703
  Serious: Yes (Hospitalization)
  Sender: FDA-Public Use
  Company Number: US-AVENTIS-200714818EU

PATIENT
  Age: 65 Year
  Sex: Male

DRUGS (8)
  1. LASIX [Suspect]
     Indication: HYPERTENSION
     Route: 048
  2. LASIX [Suspect]
     Route: 048
  3. ALDACTONE [Suspect]
     Indication: HYPERTENSION
     Route: 048
  4. ANTITHROMBOTIC AGENTS [Suspect]
     Dosage: DOSE: UNK
  5. ANTITHROMBOTIC AGENTS [Suspect]
     Dosage: DOSE: UNK
  6. VASOTEC [Suspect]
     Indication: HYPERTENSION
     Route: 048
  7. VASOTEC [Suspect]
     Route: 048
  8. DIGOXIN [Suspect]
     Route: 048

REACTIONS (2)
  - HYPOTENSION [None]
  - RENAL FAILURE [None]
